FAERS Safety Report 6491987-4 (Version None)
Quarter: 2009Q4

REPORT INFORMATION
  Report Type: 
  Country: None (occurrence: None)
  Receive Date: 20091208
  Receipt Date: 20091119
  Transmission Date: 20100525
  Serious: Yes (Other)
  Sender: FDA-Public Use
  Company Number: 2009003573

PATIENT
  Age: 81 Year
  Sex: Female
  Weight: 37.6 kg

DRUGS (6)
  1. ERLOTINIB HYDROCHLORIDE [Suspect]
     Indication: LUNG ADENOCARCINOMA
     Dosage: (150 MG,QD),ORAL
     Route: 048
     Dates: start: 20090128
  2. MUCOSTA (REBAMIPIDE) [Concomitant]
  3. FERROMIA (FERROUS CITRATE) [Concomitant]
  4. BAYASPARIN [Concomitant]
  5. CALBLOCK [Concomitant]
  6. POLITOSE (POLITOSE) [Concomitant]

REACTIONS (2)
  - DECUBITUS ULCER [None]
  - REACTION TO DRUG EXCIPIENTS [None]
